FAERS Safety Report 7901758-7 (Version None)
Quarter: 2011Q4

REPORT INFORMATION
  Report Type: 
  Country: None (occurrence: None)
  Receive Date: 20111108
  Receipt Date: 20110105
  Transmission Date: 20120403
  Serious: Yes (Hospitalization, Other)
  Sender: FDA-Public Use
  Company Number: US-BAYER-201027067NA

PATIENT
  Age: 26 Year
  Sex: Female
  Weight: 72.562 kg

DRUGS (6)
  1. YASMIN [Suspect]
     Indication: CONTRACEPTION
     Dosage: UNK UNK, UNK
     Route: 048
     Dates: start: 20040101, end: 20080801
  2. PENTERAMINE [Concomitant]
     Dosage: 30 MG, UNK
     Dates: start: 20080612
  3. LEVOTHYROXINE SODIUM [Concomitant]
  4. YAZ [Suspect]
     Indication: CONTRACEPTION
     Dosage: UNK UNK, UNK
     Route: 048
     Dates: start: 20040101, end: 20080801
  5. ALDACTONE [Concomitant]
  6. SYNTHROID [Concomitant]

REACTIONS (7)
  - CHOLELITHIASIS [None]
  - PROCEDURAL PAIN [None]
  - GALLBLADDER INJURY [None]
  - CHOLECYSTITIS [None]
  - NAUSEA [None]
  - ABDOMINAL PAIN UPPER [None]
  - CHOLECYSTITIS CHRONIC [None]
